FAERS Safety Report 7690605-7 (Version None)
Quarter: 2011Q3

REPORT INFORMATION
  Report Type: 
  Country: None (occurrence: None)
  Receive Date: 20110818
  Receipt Date: 20110804
  Transmission Date: 20111222
  Serious: Yes (Hospitalization)
  Sender: FDA-Public Use
  Company Number: GB-RANBAXY-2008RR-19809

PATIENT
  Age: 20 Year
  Sex: Male

DRUGS (3)
  1. AZITHROMYCIN [Suspect]
     Indication: PRODUCT USED FOR UNKNOWN INDICATION
     Route: 065
  2. CIPROFLOXACIN [Suspect]
     Indication: PRODUCT USED FOR UNKNOWN INDICATION
     Route: 048
  3. OMEPRAZOLE [Suspect]
     Indication: PRODUCT USED FOR UNKNOWN INDICATION
     Route: 065

REACTIONS (9)
  - PSEUDOMEMBRANOUS COLITIS [None]
  - PYREXIA [None]
  - DEHYDRATION [None]
  - HYPOTENSION [None]
  - TACHYCARDIA [None]
  - VOMITING [None]
  - CLOSTRIDIUM DIFFICILE COLITIS [None]
  - APPENDIX DISORDER [None]
  - DIARRHOEA [None]
